FAERS Safety Report 4302393-2 (Version None)
Quarter: 2004Q1

REPORT INFORMATION
  Report Type: 
  Country: None (occurrence: None)
  Receive Date: 20040126
  Receipt Date: 20031013
  Transmission Date: 20041129
  Serious: No
  Sender: FDA-Public Use
  Company Number: USA031049720

PATIENT
  Age: 5 Year
  Sex: Female
  Weight: 27 kg

DRUGS (2)
  1. STRATTERA [Suspect]
     Dosage: 10 MG/2 DAY
     Dates: start: 20030801
  2. STRATTERA [Suspect]
     Dosage: 10 MG IN THE MORNING
     Dates: start: 20030801

REACTIONS (5)
  - ANOREXIA [None]
  - HYPERHIDROSIS [None]
  - RASH [None]
  - SOMNOLENCE [None]
  - VOMITING [None]
